FAERS Safety Report 4869150-X (Version None)
Quarter: 2005Q4

REPORT INFORMATION
  Report Type: 
  Country: None (occurrence: None)
  Receive Date: 20051228
  Receipt Date: 20051228
  Transmission Date: 20060501
  Serious: Yes (Life-Threatening, Hospitalization)
  Sender: FDA-Public Use
  Company Number: None

PATIENT

DRUGS (1)
  1. ESTROGEN PATCHES [Suspect]
     Dosage: 1 PATCH WEEKLY

REACTIONS (7)
  - AMNESIA [None]
  - ARTERIAL OCCLUSIVE DISEASE [None]
  - ASTHENIA [None]
  - CEREBRAL ISCHAEMIA [None]
  - DYSPNOEA [None]
  - FATIGUE [None]
  - MEDICATION ERROR [None]
